FAERS Safety Report 5865302-0 (Version None)
Quarter: 2008Q3

REPORT INFORMATION
  Report Type: 
  Country: None (occurrence: None)
  Receive Date: 20080829
  Receipt Date: 20080818
  Transmission Date: 20090109
  Serious: Yes (Other)
  Sender: FDA-Public Use
  Company Number: US-MERCK-0808USA03237

PATIENT
  Age: 5 Year
  Sex: Female
  Weight: 27 kg

DRUGS (4)
  1. SINGULAIR [Suspect]
     Indication: COUGH
     Route: 048
     Dates: start: 20051114, end: 20060801
  2. SINGULAIR [Suspect]
     Route: 048
     Dates: end: 20070116
  3. SINGULAIR [Suspect]
     Indication: RESPIRATORY DISORDER
     Route: 048
     Dates: start: 20051114, end: 20060801
  4. SINGULAIR [Suspect]
     Route: 048
     Dates: end: 20070116

REACTIONS (2)
  - BIPOLAR DISORDER [None]
  - RESPIRATORY DISORDER [None]
